FAERS Safety Report 5101620-1 (Version None)
Quarter: 2006Q3

REPORT INFORMATION
  Report Type: 
  Country: None (occurrence: None)
  Receive Date: 20060731
  Receipt Date: 20060616
  Transmission Date: 20061208
  Serious: No
  Sender: FDA-Public Use
  Company Number: 2006PV015934

PATIENT
  Age: 74 Year
  Sex: Female

DRUGS (11)
  1. BYETTA [Suspect]
     Indication: DIABETES MELLITUS NON-INSULIN-DEPENDENT
     Dosage: 5 MCG;BID;SC
     Route: 058
     Dates: start: 20060501, end: 20060515
  2. ACTOS /USA/ [Concomitant]
  3. GLUCOTROL [Concomitant]
  4. DIGOXIN [Concomitant]
  5. ACCUPRIL [Concomitant]
  6. ISORBID [Concomitant]
  7. FUROSEMIDE [Concomitant]
  8. SPIRONOLACT [Concomitant]
  9. ASPIRIN [Concomitant]
  10. TOPROL-XL [Concomitant]
  11. LIPITOR [Concomitant]

REACTIONS (2)
  - PRURITUS [None]
  - WEIGHT DECREASED [None]
